FAERS Safety Report 26175345 (Version 1)
Quarter: 2025Q4

REPORT INFORMATION
  Report Type: Spontaneous
  Country: GB (occurrence: GB)
  Receive Date: 20251218
  Receipt Date: 20251218
  Transmission Date: 20260117
  Serious: Yes (Other)
  Sender: VERTEX
  Company Number: GB-VERTEX PHARMACEUTICALS-2025-021109

PATIENT
  Age: 45 Year
  Sex: Female

DRUGS (2)
  1. ELEXACAFTOR\IVACAFTOR\TEZACAFTOR [Suspect]
     Active Substance: ELEXACAFTOR\IVACAFTOR\TEZACAFTOR
     Indication: Cystic fibrosis
     Dosage: FULL DOSE
     Route: 061
  2. KALYDECO [Suspect]
     Active Substance: IVACAFTOR
     Indication: Cystic fibrosis
     Dosage: UNKNOWN DOSAGE REGIMEN
     Route: 061

REACTIONS (14)
  - Menopause [Unknown]
  - Paralysis [Unknown]
  - Sympathomimetic effect [Unknown]
  - Fall [Unknown]
  - Anxiety [Unknown]
  - Dissociative disorder [Unknown]
  - Palpitations [Unknown]
  - Pain [Unknown]
  - Tremor [Unknown]
  - Vaginal haemorrhage [Unknown]
  - Blood loss anaemia [Unknown]
  - Insomnia [Unknown]
  - Depression [Unknown]
  - Headache [Unknown]
